FAERS Safety Report 18486498 (Version 1)
Quarter: 2020Q4

REPORT INFORMATION
  Report Type: Spontaneous
  Country: US (occurrence: US)
  Receive Date: 20201110
  Receipt Date: 20201110
  Transmission Date: 20210114
  Serious: Yes (Hospitalization)
  Sender: FDA-Public Use
  Company Number: None

PATIENT
  Age: 56 Year
  Sex: Female

DRUGS (11)
  1. METORPOL TAR [Concomitant]
  2. NEXIUM [Concomitant]
     Active Substance: ESOMEPRAZOLE MAGNESIUM
  3. ERLOTINIB [Suspect]
     Active Substance: ERLOTINIB
     Indication: LUNG NEOPLASM MALIGNANT
     Route: 048
     Dates: start: 20190907
  4. ALBUTEROL. [Concomitant]
     Active Substance: ALBUTEROL
  5. OMPERAZOLE [Concomitant]
     Active Substance: OMEPRAZOLE
  6. TARCEVA [Concomitant]
     Active Substance: ERLOTINIB HYDROCHLORIDE
  7. DIGOXIN. [Concomitant]
     Active Substance: DIGOXIN
  8. MORPHINE SUL [Concomitant]
     Active Substance: MORPHINE SULFATE
  9. ALPRAZOLAM. [Concomitant]
     Active Substance: ALPRAZOLAM
  10. ATORVASTAIN [Concomitant]
     Active Substance: ATORVASTATIN
  11. PREDNISONE. [Concomitant]
     Active Substance: PREDNISONE

REACTIONS (1)
  - Emergency care [None]

NARRATIVE: CASE EVENT DATE: 20201109
